FAERS Safety Report 18452162 (Version 1)
Quarter: 2020Q4

REPORT INFORMATION
  Report Type: Spontaneous
  Country: IE (occurrence: IE)
  Receive Date: 20201101
  Receipt Date: 20201101
  Transmission Date: 20210114
  Serious: Yes (Other)
  Sender: FDA-Public Use
  Company Number: None

PATIENT
  Age: 7 Year
  Sex: Male

DRUGS (3)
  1. BECOTIDE 200 INHALER [Concomitant]
  2. MONTELUKAST 4 MG CHEW TABS [Suspect]
     Active Substance: MONTELUKAST SODIUM
     Indication: ASTHMA
     Dosage: ?          QUANTITY:1 TABLET(S);?
     Route: 048
  3. VENTOLIN [Concomitant]
     Active Substance: ALBUTEROL SULFATE

REACTIONS (8)
  - Suicidal ideation [None]
  - Self-injurious ideation [None]
  - Enuresis [None]
  - Anxiety [None]
  - Abnormal behaviour [None]
  - Aggression [None]
  - Nightmare [None]
  - Anger [None]

NARRATIVE: CASE EVENT DATE: 20200308
